FAERS Safety Report 7999349-5 (Version None)
Quarter: 2011Q4

REPORT INFORMATION
  Report Type: 
  Country: None (occurrence: None)
  Receive Date: 20111221
  Receipt Date: 20111208
  Transmission Date: 20120403
  Serious: Yes (Hospitalization)
  Sender: FDA-Public Use
  Company Number: GB-MEDIMMUNE-MEDI-0014164

PATIENT
  Sex: Female

DRUGS (1)
  1. SYNAGIS [Suspect]
     Dates: start: 20111001, end: 20111001

REACTIONS (4)
  - LUNG CONSOLIDATION [None]
  - CARDIAC DISORDER [None]
  - TYMPANIC MEMBRANE PERFORATION [None]
  - LOWER RESPIRATORY TRACT INFECTION [None]
